FAERS Safety Report 23851369 (Version 3)
Quarter: 2024Q2

REPORT INFORMATION
  Report Type: Report from Study
  Country: US (occurrence: US)
  Receive Date: 20240514
  Receipt Date: 20240522
  Transmission Date: 20240715
  Serious: No
  Sender: FDA-Public Use
  Company Number: US-002147023-NVSC2024US097519

PATIENT
  Age: 43 Year
  Sex: Female

DRUGS (1)
  1. KESIMPTA [Suspect]
     Active Substance: OFATUMUMAB
     Indication: Product used for unknown indication
     Dosage: UNK
     Route: 030
     Dates: start: 20240430

REACTIONS (4)
  - Bone pain [Recovered/Resolved]
  - Inappropriate schedule of product administration [Unknown]
  - Insomnia [Unknown]
  - Bone pain [Unknown]

NARRATIVE: CASE EVENT DATE: 20240430
